FAERS Safety Report 7270329-0 (Version None)
Quarter: 2011Q1

REPORT INFORMATION
  Report Type: 
  Country: None (occurrence: None)
  Receive Date: 20110202
  Receipt Date: 20101216
  Transmission Date: 20110831
  Serious: Yes (Hospitalization)
  Sender: FDA-Public Use
  Company Number: US-BAYER-201013285NA

PATIENT
  Sex: Female
  Weight: 61 kg

DRUGS (5)
  1. KAPIDEX [Concomitant]
  2. ZITHROMAX [Concomitant]
  3. YAZ [Suspect]
     Indication: ORAL CONTRACEPTION
     Route: 048
     Dates: start: 20090416, end: 20091030
  4. ACIPHEX [Concomitant]
  5. PHENERGAN HCL [Concomitant]

REACTIONS (2)
  - CHOLECYSTITIS [None]
  - GALLBLADDER CHOLESTEROLOSIS [None]
